FAERS Safety Report 23666899 (Version 4)
Quarter: 2024Q2

REPORT INFORMATION
  Report Type: Spontaneous
  Country: US (occurrence: US)
  Receive Date: 20240325
  Receipt Date: 20240606
  Transmission Date: 20240716
  Serious: No
  Sender: FDA-Public Use
  Company Number: US-ABBVIE-5690242

PATIENT
  Age: 85 Year
  Sex: Male
  Weight: 80 kg

DRUGS (10)
  1. CREON [Suspect]
     Active Substance: PANCRELIPASE AMYLASE\PANCRELIPASE LIPASE\PANCRELIPASE PROTEASE
     Indication: Pancreatic failure
     Dosage: FORM STRENGTH: 36000 UNIT?FREQUENCY: JUST BEFORE OR WITH FOOD.
     Route: 048
     Dates: start: 20240308
  2. DUTASTERIDE [Concomitant]
     Active Substance: DUTASTERIDE
     Indication: Prostatic disorder
  3. ELIQUIS [Concomitant]
     Active Substance: APIXABAN
     Indication: Anticoagulant therapy
     Dosage: TUESDAY AND THURSDAY
  4. LOSARTAN [Concomitant]
     Active Substance: LOSARTAN
     Indication: Blood pressure abnormal
  5. GLUCOSAMINE [Concomitant]
     Active Substance: GLUCOSAMINE
     Indication: Arthropathy
     Dosage: 2 PILLS
  6. KRILL OIL [Concomitant]
     Active Substance: DIETARY SUPPLEMENT\KRILL OIL
     Indication: Product used for unknown indication
  7. ATENOLOL [Concomitant]
     Active Substance: ATENOLOL
     Indication: Blood pressure abnormal
  8. ROSUVASTATIN [Concomitant]
     Active Substance: ROSUVASTATIN
     Indication: Blood cholesterol abnormal
  9. AMITRIPTYLINE [Concomitant]
     Active Substance: AMITRIPTYLINE
     Indication: Abdominal pain upper
  10. IPRATROPIUM BROMIDE [Concomitant]
     Active Substance: IPRATROPIUM BROMIDE\IPRATROPIUM BROMIDE ANHYDROUS
     Indication: Product used for unknown indication
     Dosage: 06 PERCENT (NASAL SPRAY 2)
     Route: 045

REACTIONS (17)
  - Tremor [Not Recovered/Not Resolved]
  - Frequent bowel movements [Recovering/Resolving]
  - Head discomfort [Recovered/Resolved]
  - Abdominal pain upper [Recovering/Resolving]
  - Headache [Recovered/Resolved]
  - Weight decreased [Recovering/Resolving]
  - Flatulence [Not Recovered/Not Resolved]
  - Dyspnoea [Not Recovered/Not Resolved]
  - Gastrointestinal sounds abnormal [Not Recovered/Not Resolved]
  - Aphthous ulcer [Recovering/Resolving]
  - Chapped lips [Recovering/Resolving]
  - Dry mouth [Not Recovered/Not Resolved]
  - Fatigue [Not Recovered/Not Resolved]
  - Somnolence [Not Recovered/Not Resolved]
  - Clostridium difficile infection [Recovered/Resolved]
  - Abnormal faeces [Not Recovered/Not Resolved]
  - Drug ineffective [Unknown]

NARRATIVE: CASE EVENT DATE: 20240301
